FAERS Safety Report 8993122 (Version 1)
Quarter: 2013Q1

REPORT INFORMATION
  Report Type: Report from Study
  Country: VE (occurrence: VE)
  Receive Date: 20130102
  Receipt Date: 20130102
  Transmission Date: 20140127
  Serious: Yes (Hospitalization, Other)
  Sender: FDA-Public Use
  Company Number: VE-ABBOTT-12P-178-1028340-00

PATIENT
  Age: 48 None
  Sex: Male
  Weight: 92 kg

DRUGS (1)
  1. HUMIRA [Suspect]
     Indication: BLOOD PHOSPHORUS
     Route: 058
     Dates: start: 200810, end: 201105

REACTIONS (2)
  - Systemic lupus erythematosus [Not Recovered/Not Resolved]
  - Bronchogenic cyst [Not Recovered/Not Resolved]
